FAERS Safety Report 9916487 (Version 2)
Quarter: 2014Q2

REPORT INFORMATION
  Report Type: Spontaneous
  Country: US (occurrence: US)
  Receive Date: 20140221
  Receipt Date: 20140408
  Transmission Date: 20141212
  Serious: Yes (Other)
  Sender: FDA-Public Use
  Company Number: US-SA-2014SA021540

PATIENT
  Age: 56 Year
  Sex: Male

DRUGS (2)
  1. LANTUS [Suspect]
     Indication: DIABETES MELLITUS
     Dosage: DOSE:30 UNIT(S)
     Route: 058
     Dates: start: 201402
  2. INSULIN [Concomitant]

REACTIONS (4)
  - Cerebrovascular accident [Unknown]
  - Blood glucose increased [Unknown]
  - Vision blurred [Unknown]
  - Drug dose omission [Unknown]
